FAERS Safety Report 11662685 (Version 2)
Quarter: 2015Q4

REPORT INFORMATION
  Report Type: Spontaneous
  Country: GB (occurrence: GB)
  Receive Date: 20151027
  Receipt Date: 20151203
  Transmission Date: 20160304
  Serious: Yes (Life-Threatening, Hospitalization)
  Sender: FDA-Public Use
  Company Number: GB-ACCORD-034781

PATIENT
  Age: 80 Year
  Sex: Female

DRUGS (7)
  1. FLUOXETINE [Suspect]
     Active Substance: FLUOXETINE HYDROCHLORIDE
     Indication: PRODUCT USED FOR UNKNOWN INDICATION
  2. ATORVASTATIN [Concomitant]
     Active Substance: ATORVASTATIN
     Dosage: 20 MG ONCE AT NIGHT
  3. LANSOPRAZOLE. [Concomitant]
     Active Substance: LANSOPRAZOLE
  4. DONEPEZIL/DONEPEZIL HYDROCHLORIDE [Suspect]
     Active Substance: DONEPEZIL HYDROCHLORIDE
     Indication: DEMENTIA ALZHEIMER^S TYPE
     Dosage: INCREASED FROM 5 TO 10 MG DAILY 2 WEEKS EARLIER
  5. PERINDOPRIL/PERINDOPRIL ERBUMINE [Concomitant]
  6. BUMETANIDE. [Concomitant]
     Active Substance: BUMETANIDE
  7. DILTIAZEM [Concomitant]
     Active Substance: DILTIAZEM
     Dosage: DILTIAZEM M/R

REACTIONS (13)
  - Diarrhoea [Unknown]
  - Vomiting [Unknown]
  - Decreased appetite [Unknown]
  - Dehydration [None]
  - Unresponsive to stimuli [None]
  - Torsade de pointes [Recovered/Resolved]
  - Arteriosclerosis coronary artery [None]
  - Body temperature decreased [None]
  - Agitation [None]
  - Blood pressure increased [None]
  - Mitral valve incompetence [None]
  - Confusional state [Unknown]
  - Dilatation atrial [None]
